FAERS Safety Report 16074304 (Version 3)
Quarter: 2019Q3

REPORT INFORMATION
  Report Type: Spontaneous
  Country: CZ (occurrence: CZ)
  Receive Date: 20190314
  Receipt Date: 20190806
  Transmission Date: 20191004
  Serious: Yes (Other)
  Sender: FDA-Public Use
  Company Number: CZ-ALEXION PHARMACEUTICALS INC.-A201903688

PATIENT
  Age: 37 Year
  Sex: Female
  Weight: 68 kg

DRUGS (2)
  1. SOLIRIS [Suspect]
     Active Substance: ECULIZUMAB
     Indication: ATYPICAL HAEMOLYTIC URAEMIC SYNDROME
     Dosage: 900 MG, QW
     Route: 065
     Dates: start: 20180515
  2. SOLIRIS [Suspect]
     Active Substance: ECULIZUMAB
     Dosage: 1200 MG, Q2W
     Route: 065

REACTIONS (10)
  - Intestinal haemorrhage [Unknown]
  - Hypothyroidism [Unknown]
  - Platelet disorder [Recovering/Resolving]
  - Altered state of consciousness [Unknown]
  - Retroperitoneal haemorrhage [Unknown]
  - Status epilepticus [Unknown]
  - Herpes simplex pneumonia [Unknown]
  - Haematoma [Unknown]
  - Tonsillitis [Unknown]
  - Blood fibrinogen abnormal [Recovering/Resolving]

NARRATIVE: CASE EVENT DATE: 201902
